FAERS Safety Report 10171872 (Version 2)
Quarter: 2014Q2

REPORT INFORMATION
  Report Type: Spontaneous
  Country: JP (occurrence: None)
  Receive Date: 20140512
  Receipt Date: 20140612
  Transmission Date: 20141212
  Serious: Yes (Death, Hospitalization)
  Sender: FDA-Public Use
  Company Number: VAL_03116_2014

PATIENT
  Sex: Male
  Weight: .4 kg

DRUGS (7)
  1. CALCITRIOL [Suspect]
     Indication: MATERNAL EXPOSURE TIMING UNSPECIFIED
     Dosage: (DF TRANSPLACENTAL)
     Route: 064
  2. MARZULENE ES /00518301/ [Suspect]
     Indication: MATERNAL EXPOSURE TIMING UNSPECIFIED
     Dosage: (DF TRANSPLACENTAL)
     Route: 064
  3. METHYLDOPA HYDRATE [Concomitant]
     Indication: MATERNAL EXPOSURE TIMING UNSPECIFIED
     Dosage: (DF TRANSPLACENTAL)
     Route: 064
  4. CALCIUM CARBONATE [Concomitant]
     Indication: MATERNAL EXPOSURE TIMING UNSPECIFIED
     Dosage: (DF TRANSPLACENTAL)
     Route: 064
  5. UNSPECIFIED INGREDIENT [Concomitant]
     Indication: MATERNAL EXPOSURE TIMING UNSPECIFIED
     Dosage: (DF TRANSPLACENTAL)
     Route: 064
  6. UNSPECIFIED INGREDIENT [Concomitant]
     Indication: MATERNAL EXPOSURE TIMING UNSPECIFIED
     Dosage: (DF TRANSPLACENTAL)
     Route: 064
  7. VITAMIN D /00107901/ [Concomitant]
     Indication: MATERNAL EXPOSURE TIMING UNSPECIFIED
     Dosage: (DF TRANSPLACENTAL)
     Route: 064

REACTIONS (9)
  - Maternal drugs affecting foetus [None]
  - Foetal growth restriction [None]
  - Caesarean section [None]
  - Premature baby [None]
  - Dialysis [None]
  - Hypercalcaemia [None]
  - Death neonatal [None]
  - Foetal exposure during pregnancy [None]
  - Premature baby [None]
